FAERS Safety Report 6545702-6 (Version None)
Quarter: 2010Q1

REPORT INFORMATION
  Report Type: 
  Country: None (occurrence: None)
  Receive Date: 20100121
  Receipt Date: 20100118
  Transmission Date: 20100710
  Serious: Yes (Disabling)
  Sender: FDA-Public Use
  Company Number: PHEH2009US09743

PATIENT
  Age: 80 Year
  Sex: Female

DRUGS (8)
  1. FEMARA [Suspect]
     Indication: BREAST CANCER
     Dosage: 2.5 MG, QD
     Route: 048
     Dates: start: 20090701
  2. TOPROL-XL [Concomitant]
  3. DILTIA XT [Concomitant]
  4. CELEBREX [Concomitant]
  5. ALOPURINOL ^BELUPO^ [Concomitant]
  6. LIPITOR [Concomitant]
  7. ASPIRIN [Concomitant]
  8. BONIVA [Concomitant]

REACTIONS (1)
  - DEAFNESS BILATERAL [None]
